FAERS Safety Report 16474377 (Version 1)
Quarter: 2019Q2

REPORT INFORMATION
  Report Type: Spontaneous
  Country: FR (occurrence: FR)
  Receive Date: 20190625
  Receipt Date: 20190625
  Transmission Date: 20190711
  Serious: Yes (Congenital Anomaly)
  Sender: FDA-Public Use
  Company Number: FR-BIOVITRUM-BVT-000684

PATIENT
  Sex: Female
  Weight: .62 kg

DRUGS (1)
  1. KINERET [Suspect]
     Active Substance: ANAKINRA
     Indication: STILL^S DISEASE

REACTIONS (4)
  - Brain malformation [Fatal]
  - Congenital central nervous system anomaly [Fatal]
  - Paternal exposure timing unspecified [Fatal]
  - Abortion induced [Fatal]

NARRATIVE: CASE EVENT DATE: 2010
